FAERS Safety Report 24642477 (Version 1)
Quarter: 2024Q4

REPORT INFORMATION
  Report Type: Spontaneous
  Country: CN (occurrence: CN)
  Receive Date: 20241120
  Receipt Date: 20241120
  Transmission Date: 20250114
  Serious: Yes (Other)
  Sender: FRESENIUS KABI
  Company Number: CN-FreseniusKabi-FK202416809

PATIENT
  Age: 72 Year
  Sex: Male
  Weight: 39 kg

DRUGS (10)
  1. DEXTROSE [Suspect]
     Active Substance: DEXTROSE MONOHYDRATE
     Indication: Malnutrition
     Dosage: FORM OF ADMIN-INJECTION
     Route: 041
     Dates: start: 20241105, end: 20241108
  2. SMOFLIPID [Suspect]
     Active Substance: FISH OIL\MEDIUM-CHAIN TRIGLYCERIDES\OLIVE OIL\SOYBEAN OIL
     Indication: Malnutrition
     Dosage: FORM OF ADMIN-INJECTION
     Route: 041
     Dates: start: 20241105, end: 20241108
  3. POTASSIUM CHLORIDE [Suspect]
     Active Substance: POTASSIUM CHLORIDE
     Indication: Malnutrition
     Dosage: FOA-INJECTION
     Route: 041
     Dates: start: 20241105, end: 20241108
  4. AMINO ACIDS, SOURCE UNSPECIFIED [Suspect]
     Active Substance: AMINO ACIDS, SOURCE UNSPECIFIED
     Indication: Malnutrition
     Dosage: FOA-INJECTION
     Route: 041
     Dates: start: 20241105, end: 20241108
  5. ELECTROLYTES NOS\MINERALS [Suspect]
     Active Substance: ELECTROLYTES NOS\MINERALS
     Indication: Malnutrition
     Dosage: FOA-INJECTION
     Route: 041
     Dates: start: 20241105, end: 20241108
  6. VITAMINS [Suspect]
     Active Substance: VITAMINS
     Indication: Malnutrition
     Dosage: FOA-POWDER FOR INJECTION
     Route: 041
     Dates: start: 20241105, end: 20241108
  7. VITAMINS [Suspect]
     Active Substance: VITAMINS
     Indication: Malnutrition
     Dosage: FOA-POWDER FOR INJECTION
     Route: 041
     Dates: start: 20241105, end: 20241108
  8. SODIUM CHLORIDE [Suspect]
     Active Substance: SODIUM CHLORIDE
     Indication: Malnutrition
     Dosage: FOA-INJECTION
     Route: 041
     Dates: start: 20241105, end: 20241108
  9. INSULIN NOS [Suspect]
     Active Substance: INSULIN NOS
     Indication: Malnutrition
     Dosage: FOA-INJECTION
     Route: 041
     Dates: start: 20241105, end: 20241108
  10. DEXTROSE [Suspect]
     Active Substance: DEXTROSE MONOHYDRATE
     Indication: Malnutrition
     Dosage: FOA-INJECTION
     Route: 041
     Dates: start: 20241105, end: 20241108

REACTIONS (6)
  - Hypoglycaemia [Recovering/Resolving]
  - Chest discomfort [Recovering/Resolving]
  - Dyspnoea [Recovering/Resolving]
  - Oxygen saturation decreased [Recovering/Resolving]
  - Asthenia [Recovering/Resolving]
  - Hyperhidrosis [Recovering/Resolving]

NARRATIVE: CASE EVENT DATE: 20241107
